FAERS Safety Report 6172501-X (Version None)
Quarter: 2009Q2

REPORT INFORMATION
  Report Type: 
  Country: None (occurrence: None)
  Receive Date: 20090427
  Receipt Date: 20090420
  Transmission Date: 20091009
  Serious: Yes (Hospitalization, Disabling)
  Sender: FDA-Public Use
  Company Number: CAP09000096

PATIENT
  Age: 57 Year
  Sex: Female
  Weight: 46.3 kg

DRUGS (4)
  1. ACTONEL [Suspect]
     Indication: OSTEOPOROSIS
     Dosage: 35 MG ONCE WEEKLY, ORAL
     Route: 048
     Dates: start: 20040801, end: 20090201
  2. ACTONEL [Suspect]
     Indication: RESORPTION BONE INCREASED
     Dosage: 35 MG ONCE WEEKLY, ORAL
     Route: 048
     Dates: start: 20040801, end: 20090201
  3. FOSAMAX [Suspect]
     Indication: OSTEOPOROSIS
     Dosage: 70 MG ONCE WEEKLY, ORAL
     Route: 048
     Dates: start: 20020301, end: 20040801
  4. CALTRATE D (CALCIUM CARBONATE) [Concomitant]

REACTIONS (6)
  - ASTHENIA [None]
  - COORDINATION ABNORMAL [None]
  - FALL [None]
  - FEMUR FRACTURE [None]
  - MUSCULAR WEAKNESS [None]
  - STRESS FRACTURE [None]
